FAERS Safety Report 14188257 (Version 1)
Quarter: 2017Q4

REPORT INFORMATION
  Report Type: Spontaneous
  Country: ZA (occurrence: ZA)
  Receive Date: 20171114
  Receipt Date: 20171114
  Transmission Date: 20180321
  Serious: Yes (Hospitalization)
  Sender: FDA-Public Use
  Company Number: ZA-MYLANLABS-2017M1071267

PATIENT
  Age: 82 Year
  Sex: Female

DRUGS (7)
  1. ZOMEVEK [Suspect]
     Active Substance: VALSARTAN
     Indication: HYPERTENSION
     Dosage: 160 MG, UNK
     Route: 048
  2. IVEDAL [Suspect]
     Active Substance: ZOLPIDEM TARTRATE
     Indication: SLEEP DISORDER
     Dosage: 10 MG, UNK
     Route: 048
  3. ARYCOR [Suspect]
     Active Substance: AMIODARONE HYDROCHLORIDE
     Indication: ARRHYTHMIA PROPHYLAXIS
     Dosage: 100 MG, UNK
     Route: 048
  4. PANTOPRAZOLE MYLAN [Suspect]
     Active Substance: PANTOPRAZOLE SODIUM
     Indication: ULCER
     Dosage: 40 MG, UNK
     Route: 048
  5. ELTROXIN [Suspect]
     Active Substance: LEVOTHYROXINE
     Indication: THYROID DISORDER
     Dosage: 100 ?G, UNK
     Route: 048
  6. VESICARE [Suspect]
     Active Substance: SOLIFENACIN SUCCINATE
     Indication: URINARY INCONTINENCE
     Dosage: 10 MG, UNK
     Route: 048
  7. ELTROXIN [Suspect]
     Active Substance: LEVOTHYROXINE
     Dosage: 50 ?G, UNK
     Route: 048

REACTIONS (5)
  - Diarrhoea [Unknown]
  - Fall [Unknown]
  - Abdominal pain upper [Unknown]
  - Upper limb fracture [Unknown]
  - Syncope [Unknown]
